FAERS Safety Report 7979483-6 (Version None)
Quarter: 2011Q4

REPORT INFORMATION
  Report Type: 
  Country: None (occurrence: None)
  Receive Date: 20111214
  Receipt Date: 20111213
  Transmission Date: 20120403
  Serious: Yes (Hospitalization)
  Sender: FDA-Public Use
  Company Number: PHHY2011CN82273

PATIENT
  Sex: Male
  Weight: 47 kg

DRUGS (2)
  1. SEBIVO [Suspect]
     Indication: HEPATITIS B
     Dosage: 600 MG, QD
     Dates: start: 20101001, end: 20110812
  2. TRADITIONAL CHINESE MEDICINE [Concomitant]
     Dosage: UNK UKN, UNK
     Dates: start: 20110710, end: 20110812

REACTIONS (8)
  - MUSCULAR WEAKNESS [None]
  - BLOOD LACTIC ACID INCREASED [None]
  - MALAISE [None]
  - ELECTROMYOGRAM ABNORMAL [None]
  - RHABDOMYOLYSIS [None]
  - OEDEMA PERIPHERAL [None]
  - BLOOD CREATINE PHOSPHOKINASE INCREASED [None]
  - BLOOD CREATINE PHOSPHOKINASE MB INCREASED [None]
